FAERS Safety Report 17521640 (Version 1)
Quarter: 2020Q1

REPORT INFORMATION
  Report Type: Spontaneous
  Country: DE (occurrence: DE)
  Receive Date: 20200310
  Receipt Date: 20200310
  Transmission Date: 20200409
  Serious: Yes (Other)
  Sender: FDA-Public Use
  Company Number: DE-MYLANLABS-2020M1024493

PATIENT
  Age: 62 Year
  Sex: Female
  Weight: 60 kg

DRUGS (2)
  1. OMEPRAZOLE. [Suspect]
     Active Substance: OMEPRAZOLE
     Indication: DYSPEPSIA
     Dosage: 20 MILLIGRAM, QD
     Route: 048
  2. OMEPRAZOLE. [Suspect]
     Active Substance: OMEPRAZOLE
     Dosage: 40 MILLIGRAM, QD
     Route: 048

REACTIONS (32)
  - Helicobacter infection [Unknown]
  - Vomiting [Unknown]
  - Diverticulum intestinal [Unknown]
  - Tongue disorder [Unknown]
  - Gastrooesophageal reflux disease [Unknown]
  - Rebound effect [Recovered/Resolved]
  - Eructation [Unknown]
  - Pancreatic disorder [Unknown]
  - Abdominal tenderness [Unknown]
  - Pelvic pain [Not Recovered/Not Resolved]
  - Gastrointestinal disorder [Unknown]
  - Abdominal pain [Unknown]
  - Diarrhoea [Unknown]
  - Renal disorder [Unknown]
  - Gastrooesophageal sphincter insufficiency [Unknown]
  - Splenic calcification [Unknown]
  - Gastritis [Unknown]
  - Pelvic floor muscle weakness [Unknown]
  - Insomnia [Unknown]
  - Cough [Unknown]
  - Sensation of foreign body [Unknown]
  - Chronic gastritis [Unknown]
  - Rhinorrhoea [Unknown]
  - Intentional product misuse [Unknown]
  - Unevaluable event [Unknown]
  - Hiatus hernia [Unknown]
  - Dysphagia [Unknown]
  - Atopy [Unknown]
  - Acrochordon [Unknown]
  - Dyspepsia [Unknown]
  - Neck pain [Unknown]
  - Abdominal distension [Unknown]

NARRATIVE: CASE EVENT DATE: 2019
